FAERS Safety Report 6186204-9 (Version None)
Quarter: 2009Q2

REPORT INFORMATION
  Report Type: 
  Country: None (occurrence: None)
  Receive Date: 20090507
  Receipt Date: 20090507
  Transmission Date: 20091009
  Serious: Yes (Hospitalization)
  Sender: FDA-Public Use
  Company Number: None

PATIENT
  Age: 69 Year
  Sex: Male
  Weight: 70.6 kg

DRUGS (2)
  1. DOCETAXEL [Suspect]
     Indication: LUNG CANCER METASTATIC
     Dosage: IV
     Dates: start: 20080427, end: 20090427
  2. CARBOPLATIN [Suspect]

REACTIONS (2)
  - CHEST PAIN [None]
  - NAUSEA [None]
